FAERS Safety Report 5644169-X (Version None)
Quarter: 2008Q1

REPORT INFORMATION
  Report Type: 
  Country: None (occurrence: None)
  Receive Date: 20080229
  Receipt Date: 20080221
  Transmission Date: 20080703
  Serious: Yes (Hospitalization, Other)
  Sender: FDA-Public Use
  Company Number: US-BAYER-200810742NA

PATIENT
  Age: 29 Year
  Sex: Female
  Weight: 103 kg

DRUGS (3)
  1. MIRENA [Suspect]
     Indication: CONTRACEPTION
     Route: 015
     Dates: start: 20070709, end: 20071101
  2. ESTRACE [Concomitant]
     Route: 048
     Dates: start: 20070820
  3. PRENATE ELITE (90-1-50 MG) [Concomitant]
     Route: 048
     Dates: start: 20070305

REACTIONS (2)
  - IUCD COMPLICATION [None]
  - UTERINE RUPTURE [None]
